FAERS Safety Report 12106638 (Version 1)
Quarter: 2016Q1

REPORT INFORMATION
  Report Type: Spontaneous
  Country: US (occurrence: US)
  Receive Date: 20160223
  Receipt Date: 20160223
  Transmission Date: 20160526
  Serious: No
  Sender: FDA-Public Use
  Company Number: US-BRACCO-011678

PATIENT
  Age: 72 Year
  Sex: Female
  Weight: 64 kg

DRUGS (1)
  1. ISOVUE 370 [Suspect]
     Active Substance: IOPAMIDOL
     Indication: COMPUTERISED TOMOGRAM
     Route: 042
     Dates: start: 20150120, end: 20150120

REACTIONS (1)
  - Throat irritation [Unknown]

NARRATIVE: CASE EVENT DATE: 20150120
